FAERS Safety Report 7781430-7 (Version None)
Quarter: 2011Q3

REPORT INFORMATION
  Report Type: 
  Country: None (occurrence: None)
  Receive Date: 20110927
  Receipt Date: 20110923
  Transmission Date: 20111222
  Serious: Yes (Death, Life-Threatening, Hospitalization, Other)
  Sender: FDA-Public Use
  Company Number: PHHY2011GB52893

PATIENT
  Age: 3 Year
  Sex: Male
  Weight: 15.9 kg

DRUGS (16)
  1. METHOTREXATE [Suspect]
     Indication: GRAFT VERSUS HOST DISEASE
     Dosage: 13.6 MG, TOTAL
     Route: 042
     Dates: start: 20110116, end: 20110119
  2. THIOTEPA [Concomitant]
     Dosage: 10 MG/KG, UNK
     Route: 042
  3. BUSULFAN [Suspect]
     Indication: BONE MARROW FAILURE
     Dosage: 224 MG, TOTAL
     Route: 048
     Dates: start: 20110103, end: 20110106
  4. CYCLOPHOSPHAMIDE [Suspect]
  5. ONDANSETRON [Concomitant]
  6. PENTAMIDINE ISETHIONATE [Concomitant]
  7. CIPROFLOXACIN [Concomitant]
  8. VITAMIN K TAB [Concomitant]
  9. CYCLOSPORINE [Concomitant]
     Indication: PROPHYLAXIS AGAINST GRAFT VERSUS HOST DISEASE
     Route: 048
  10. PHENYTOIN [Concomitant]
  11. ACYCLOVIR [Concomitant]
  12. ALEMTUZUMAB [Concomitant]
     Dosage: 0.3 MG/KG, UNK
  13. ITRACONAZOLE [Concomitant]
  14. LANSOPRAZOLE [Concomitant]
  15. MESNA [Concomitant]
  16. ALLOPURINOL [Concomitant]

REACTIONS (3)
  - CYTOMEGALOVIRUS INFECTION [None]
  - VENOOCCLUSIVE DISEASE [None]
  - LUNG CONSOLIDATION [None]
